FAERS Safety Report 15056742 (Version 1)
Quarter: 2018Q2

REPORT INFORMATION
  Report Type: Spontaneous
  Country: US (occurrence: US)
  Receive Date: 20180604
  Receipt Date: 20180604
  Transmission Date: 20180711
  Serious: Yes (Hospitalization)
  Sender: FDA-Public Use
  Company Number: None

PATIENT
  Age: 85 Year
  Sex: Female

DRUGS (8)
  1. METOPROLOL. [Concomitant]
     Active Substance: METOPROLOL
  2. PRESERVISION [Concomitant]
     Active Substance: MINERALS\VITAMINS
  3. ACTEMRA [Suspect]
     Active Substance: TOCILIZUMAB
     Indication: TEMPORAL ARTERITIS
     Dosage: ?          QUANTITY:1 DF DOSAGE FORM;?
     Route: 030
  4. DIGOXIN. [Concomitant]
     Active Substance: DIGOXIN
  5. FUROSEMIDE. [Concomitant]
     Active Substance: FUROSEMIDE
  6. PREDNISONE. [Concomitant]
     Active Substance: PREDNISONE
  7. SYSTANE (HYPROMELLOSE 2910 (4000 MPA.S)) [Concomitant]
     Active Substance: HYPROMELLOSE 2910 (4000 MPA.S)
  8. ELIQUIS [Concomitant]
     Active Substance: APIXABAN

REACTIONS (12)
  - Rash [None]
  - Pollakiuria [None]
  - Arthritis [None]
  - Weight decreased [None]
  - Frequent bowel movements [None]
  - Impaired work ability [None]
  - Fatigue [None]
  - Pruritus [None]
  - Confusional state [None]
  - Dizziness [None]
  - Eye pain [None]
  - Insomnia [None]

NARRATIVE: CASE EVENT DATE: 20171215
